FAERS Safety Report 7432282-6 (Version None)
Quarter: 2011Q2

REPORT INFORMATION
  Report Type: 
  Country: None (occurrence: None)
  Receive Date: 20110414
  Receipt Date: 20110330
  Transmission Date: 20111010
  Serious: Yes (Death)
  Sender: FDA-Public Use
  Company Number: 872981

PATIENT
  Age: 87 Year
  Sex: Male
  Weight: 87.73 kg

DRUGS (17)
  1. ROSIGLITAZONE [Concomitant]
  2. SERTRALINE [Concomitant]
  3. VANCOMYCIN HYDROCHLORIDE [Suspect]
     Indication: OSTEOMYELITIS
     Dosage: 1 GM Q12H, INTRAVENOUS
     Route: 042
     Dates: start: 20110216, end: 20110221
  4. QUETIAPINE [Concomitant]
  5. SIMVASTATIN [Concomitant]
  6. VANCOMYCIN HCL [Suspect]
     Indication: OSTEOMYELITIS
     Dosage: 1 G, Q12H; INTRAVENOUS (NOT OTHERWISE SPECIFIED)
     Route: 042
     Dates: start: 20110216, end: 20110221
  7. GLIPIZIDE [Concomitant]
  8. OXYCODONE [Concomitant]
  9. TEMAZ [Concomitant]
  10. VANCOMYCIN HCL [Suspect]
     Indication: OSTEOMYELITIS
     Dosage: 1 G, Q12H, INTRAVENOUS;
     Route: 042
     Dates: start: 20110216, end: 20110221
  11. QUETIAPINE [Suspect]
     Indication: OSTEOMYELITIS
     Dosage: 25 MG, DAILY, ORAL
     Route: 048
     Dates: start: 20110216, end: 20110228
  12. CILOSTAZOL [Concomitant]
  13. PANTOPRAZOLE [Concomitant]
  14. REGULAR INSULIN [Concomitant]
  15. HEPARIN SODIUM INJECTION [Concomitant]
  16. LISINOPRIL [Concomitant]
  17. VANCOMYCIN HYDROCHLORIDE [Suspect]
     Indication: OSTEOMYELITIS
     Dosage: 1 G Q12H; INTRAVENOUS (NOT OTHERWISE SPECIFIED)
     Route: 042
     Dates: start: 20110216, end: 20110221

REACTIONS (3)
  - NEPHROPATHY TOXIC [None]
  - DIALYSIS [None]
  - BLOOD CREATININE INCREASED [None]
